FAERS Safety Report 5911283-0 (Version None)
Quarter: 2008Q4

REPORT INFORMATION
  Report Type: 
  Country: None (occurrence: None)
  Receive Date: 20081007
  Receipt Date: 20081001
  Transmission Date: 20090506
  Serious: No
  Sender: FDA-Public Use
  Company Number: US-B.I. PHARMACEUTICALS,INC./RIDGEFIELD-2008-BP-15279BP

PATIENT
  Age: 55 Year
  Sex: Female

DRUGS (4)
  1. SPIRIVA [Suspect]
     Indication: CHRONIC OBSTRUCTIVE PULMONARY DISEASE
     Route: 055
     Dates: start: 20070901
  2. NEURONTIN [Concomitant]
     Indication: BACK INJURY
     Dates: start: 20040101
  3. CELEXA [Concomitant]
  4. BUSPIRONE HCL [Concomitant]

REACTIONS (2)
  - PHARYNGEAL ERYTHEMA [None]
  - THROAT IRRITATION [None]
